FAERS Safety Report 6808762-0 (Version None)
Quarter: 2010Q2

REPORT INFORMATION
  Report Type: 
  Country: None (occurrence: None)
  Receive Date: 20100630
  Receipt Date: 20091106
  Transmission Date: 20101027
  Serious: No
  Sender: FDA-Public Use
  Company Number: US-PFIZER INC-2009273757

PATIENT
  Sex: Male
  Weight: 74.8 kg

DRUGS (2)
  1. VIAGRA [Suspect]
     Indication: ERECTILE DYSFUNCTION
     Dosage: 100 MG, AS NEEDED
     Route: 048
     Dates: start: 20080101
  2. TYLENOL [Concomitant]
     Indication: HEADACHE
     Dosage: UNK

REACTIONS (3)
  - COLOUR BLINDNESS ACQUIRED [None]
  - DRUG INEFFECTIVE [None]
  - DYSPEPSIA [None]
